FAERS Safety Report 11647555 (Version 2)
Quarter: 2015Q4

REPORT INFORMATION
  Report Type: Spontaneous
  Country: JP (occurrence: JP)
  Receive Date: 20151021
  Receipt Date: 20151228
  Transmission Date: 20160304
  Serious: Yes (Death, Other)
  Sender: FDA-Public Use
  Company Number: JP-ROCHE-1648502

PATIENT
  Age: 80 Year
  Sex: Female
  Weight: 42 kg

DRUGS (10)
  1. MIYA-BM [Concomitant]
     Active Substance: CLOSTRIDIUM BUTYRICUM SPORES STRAIN M-55
     Indication: COLON CANCER
     Route: 048
  2. NEXIUM [Concomitant]
     Active Substance: ESOMEPRAZOLE MAGNESIUM
     Indication: COLON CANCER
     Route: 048
  3. XELODA [Suspect]
     Active Substance: CAPECITABINE
     Indication: COLON CANCER
     Dosage: SPLIT NUMBER OF DOSES IS UNKNOWN.?DOSING INTERVAL IS UNKNOWN.
     Route: 048
     Dates: start: 20150716, end: 20150718
  4. ELPLAT [Concomitant]
     Active Substance: OXALIPLATIN
     Indication: COLON CANCER
     Dosage: SPLIT NUMBER OF DOSES IS UNKNOWN.?DOSING INTERVAL IS UNKNOWN.
     Route: 041
     Dates: start: 20150716, end: 20150718
  5. LIXIANA [Concomitant]
     Active Substance: EDOXABAN TOSILATE MONOHYDRATE
     Route: 048
     Dates: start: 20150917
  6. ZETIA [Concomitant]
     Active Substance: EZETIMIBE
     Route: 048
  7. LOSARHYD [Concomitant]
     Indication: COLON CANCER
     Route: 048
  8. LOSARHYD [Concomitant]
     Indication: COLON CANCER
     Route: 048
  9. XELODA [Suspect]
     Active Substance: CAPECITABINE
     Indication: COLON CANCER
     Dosage: 2 WEEKS ADMINISTRATION FOLLOWED BY 1 WEEK REST
     Route: 048
     Dates: start: 20150928, end: 20151005
  10. FUROSEMIDE. [Concomitant]
     Active Substance: FUROSEMIDE
     Indication: COLON CANCER
     Route: 048

REACTIONS (7)
  - Enterocolitis [Fatal]
  - Ileus [Unknown]
  - Disseminated intravascular coagulation [Unknown]
  - Duodenal ulcer haemorrhage [Unknown]
  - Duodenal ulcer [Unknown]
  - Stomatitis [Unknown]
  - Gastric ulcer [Unknown]

NARRATIVE: CASE EVENT DATE: 20151005
